FAERS Safety Report 25860411 (Version 1)
Quarter: 2025Q3

REPORT INFORMATION
  Report Type: Spontaneous
  Country: US (occurrence: None)
  Receive Date: 20250928
  Receipt Date: 20250928
  Transmission Date: 20251021
  Serious: Yes (Death, Life-Threatening, Hospitalization, Disabling, Other)
  Sender: FDA-CTU
  Company Number: None

PATIENT
  Age: 49 Year
  Sex: Male
  Weight: 94.95 kg

DRUGS (9)
  1. DURVALUMAB [Suspect]
     Active Substance: DURVALUMAB
     Indication: Bladder cancer
     Dates: start: 20250512
  2. DURVALUMAB [Suspect]
     Active Substance: DURVALUMAB
     Indication: Metastases to liver
  3. DURVALUMAB [Suspect]
     Active Substance: DURVALUMAB
     Indication: Metastases to bone
  4. CISPLATIN [Suspect]
     Active Substance: CISPLATIN
     Dates: start: 20250512, end: 20250714
  5. ETOPOSIDE [Suspect]
     Active Substance: ETOPOSIDE
     Dates: start: 20250512, end: 20250714
  6. DENOSUMAB [Suspect]
     Active Substance: DENOSUMAB
     Dates: start: 20250811
  7. PALONOSETRON [Concomitant]
     Active Substance: PALONOSETRON
     Dates: start: 20250512
  8. FOSAPREPITANT [Concomitant]
     Active Substance: FOSAPREPITANT
     Dates: start: 20250512
  9. DECADRON [Concomitant]
     Active Substance: DEXAMETHASONE
     Dates: start: 20250512

REACTIONS (2)
  - Transient ischaemic attack [None]
  - General physical health deterioration [None]

NARRATIVE: CASE EVENT DATE: 20250821
